FAERS Safety Report 18990665 (Version 1)
Quarter: 2021Q1

REPORT INFORMATION
  Report Type: Spontaneous
  Country: JP (occurrence: JP)
  Receive Date: 20210310
  Receipt Date: 20210310
  Transmission Date: 20210420
  Serious: Yes (Other)
  Sender: FDA-Public Use
  Company Number: JP-JNJFOC-20210307509

PATIENT
  Age: 76 Year
  Sex: Male

DRUGS (2)
  1. RIVAROXABAN [Suspect]
     Active Substance: RIVAROXABAN
     Indication: ATRIAL FIBRILLATION
     Dosage: UNK?XARELTO 15 MG
     Route: 048
     Dates: start: 2015
  2. RIVAROXABAN [Suspect]
     Active Substance: RIVAROXABAN
     Dosage: XARELTO 10 MG
     Route: 048

REACTIONS (5)
  - Haemorrhage [Unknown]
  - Blood lactate dehydrogenase increased [Unknown]
  - Blood potassium increased [Unknown]
  - Haemolysis [Unknown]
  - Prostate cancer [Unknown]
